FAERS Safety Report 12245804 (Version 3)
Quarter: 2016Q3

REPORT INFORMATION
  Report Type: Spontaneous
  Country: NO (occurrence: NO)
  Receive Date: 20160407
  Receipt Date: 20160921
  Transmission Date: 20161109
  Serious: Yes (Death, Other)
  Sender: FDA-Public Use
  Company Number: NO-AMGEN-NORSP2016041840

PATIENT
  Age: 65 Year
  Sex: Female

DRUGS (15)
  1. METHOTREXATE. [Suspect]
     Active Substance: METHOTREXATE
     Dosage: 1500 MG/M2, UNK
     Route: 042
  2. THIOGUANINE [Suspect]
     Active Substance: THIOGUANINE
     Indication: PRECURSOR T-LYMPHOBLASTIC LYMPHOMA/LEUKAEMIA
     Dosage: 150 MG/M2, UNK
     Route: 042
  3. DOXORUBICIN [Suspect]
     Active Substance: DOXORUBICIN
     Indication: PRECURSOR T-LYMPHOBLASTIC LYMPHOMA/LEUKAEMIA
     Dosage: 30 MG/M2 ON DAYS 8, 15 AND 22
     Route: 042
  4. SENDOXAN [Suspect]
     Active Substance: CYCLOPHOSPHAMIDE
     Indication: PRECURSOR T-LYMPHOBLASTIC LYMPHOMA/LEUKAEMIA
     Dosage: 750 MG/M2 ON DAYS 15, 22 AND 29
     Route: 042
  5. ASPARAGINASE [Suspect]
     Active Substance: ASPARAGINASE
     Dosage: ON DAYS 8-21
     Route: 042
  6. CYTARABINE. [Suspect]
     Active Substance: CYTARABINE
     Dosage: 40 MG, UNK
     Route: 037
  7. VINCRISTINE [Suspect]
     Active Substance: VINCRISTINE
     Indication: PRECURSOR T-LYMPHOBLASTIC LYMPHOMA/LEUKAEMIA
     Dosage: 1.5 MG/M2 (1.5 MG/M2 ON DAYS 1, 8, 15, 22 AND 29)
     Route: 042
  8. MERCAPTOPURINE. [Suspect]
     Active Substance: MERCAPTOPURINE
     Indication: PRECURSOR T-LYMPHOBLASTIC LYMPHOMA/LEUKAEMIA
     Dosage: 35 MG/M2, UNK
     Route: 048
  9. METHOTREXATE. [Suspect]
     Active Substance: METHOTREXATE
     Indication: PRECURSOR T-LYMPHOBLASTIC LYMPHOMA/LEUKAEMIA
     Dosage: 15 MG, UNK (15 MG ON DAYS 15, 29)
     Route: 039
  10. NEUPOGEN [Suspect]
     Active Substance: FILGRASTIM
     Indication: PERIPHERAL BLOOD STEM CELL APHERESIS
     Dosage: 10 MUG/KG, QD (10 MCG, QD)
     Route: 065
  11. DAUNORUBICIN [Suspect]
     Active Substance: DAUNORUBICIN
     Indication: PRECURSOR T-LYMPHOBLASTIC LYMPHOMA/LEUKAEMIA
     Dosage: 50 MG/M2, UNK
     Route: 042
  12. CYTARABINE. [Suspect]
     Active Substance: CYTARABINE
     Indication: PRECURSOR T-LYMPHOBLASTIC LYMPHOMA/LEUKAEMIA
     Dosage: 200 MG/M2, UNK
     Route: 042
  13. PREDNISONE. [Suspect]
     Active Substance: PREDNISONE
     Dosage: 40 MG/M2, UNK (40 MG/M2 ON DAYS 1-29, TAPERING TO DAY 35)
     Route: 048
  14. ASPARAGINASE [Suspect]
     Active Substance: ASPARAGINASE
     Indication: PRECURSOR T-LYMPHOBLASTIC LYMPHOMA/LEUKAEMIA
     Dosage: 10 IU ON DAYS 8-21
     Route: 042
  15. PREDNISONE. [Suspect]
     Active Substance: PREDNISONE
     Indication: PRECURSOR T-LYMPHOBLASTIC LYMPHOMA/LEUKAEMIA
     Dosage: 10 MG, UNK
     Route: 037

REACTIONS (4)
  - Intracranial venous sinus thrombosis [Fatal]
  - Death [Fatal]
  - Haematotoxicity [Unknown]
  - Febrile neutropenia [Unknown]
